FAERS Safety Report 16873948 (Version 1)
Quarter: 2019Q4

REPORT INFORMATION
  Report Type: Spontaneous
  Country: GB (occurrence: GB)
  Receive Date: 20191001
  Receipt Date: 20191001
  Transmission Date: 20200122
  Serious: Yes (Life-Threatening, Hospitalization, Disabling, Other)
  Sender: FDA-Public Use
  Company Number: GB-MYLANLABS-2019M1091798

PATIENT
  Age: 47 Year
  Sex: Male
  Weight: 83 kg

DRUGS (9)
  1. MOMETASONE FUROATE. [Concomitant]
     Active Substance: MOMETASONE FUROATE
     Dosage: UNK
  2. FEXOFENADINE [Concomitant]
     Active Substance: FEXOFENADINE HYDROCHLORIDE
     Dosage: UNK
  3. VITAMIN D                          /00107901/ [Concomitant]
     Active Substance: ERGOCALCIFEROL
     Dosage: UNK
  4. VITAMIN C [Concomitant]
     Active Substance: ASCORBIC ACID
     Dosage: UNK
  5. CLARITHROMYCIN. [Concomitant]
     Active Substance: CLARITHROMYCIN
     Dosage: UNK
  6. NORTRIPTYLINE [Suspect]
     Active Substance: NORTRIPTYLINE
     Indication: HEADACHE
     Dosage: 10 MILLIGRAM, QD (10 MG (?) DAILY)
     Route: 048
     Dates: start: 20190305, end: 20190401
  7. INDOMETACIN [Concomitant]
     Active Substance: INDOMETHACIN
     Dosage: UNK
  8. LANSOPRAZOLE. [Concomitant]
     Active Substance: LANSOPRAZOLE
     Dosage: UNK
  9. ZINC. [Concomitant]
     Active Substance: ZINC
     Dosage: UNK

REACTIONS (14)
  - Feeling of body temperature change [Recovered/Resolved]
  - Paranoia [Recovered/Resolved with Sequelae]
  - Insomnia [Recovering/Resolving]
  - Increased appetite [Not Recovered/Not Resolved]
  - Delusion [Recovered/Resolved with Sequelae]
  - Psychotic disorder [Recovered/Resolved]
  - Anxiety [Unknown]
  - Confusional state [Recovered/Resolved with Sequelae]
  - Loss of libido [Recovered/Resolved]
  - Parosmia [Recovered/Resolved with Sequelae]
  - Dysuria [Recovered/Resolved]
  - Dry mouth [Recovered/Resolved]
  - Hallucination [Recovered/Resolved]
  - Palpitations [Recovered/Resolved]

NARRATIVE: CASE EVENT DATE: 20190320
